FAERS Safety Report 4599134-0 (Version None)
Quarter: 2005Q1

REPORT INFORMATION
  Report Type: 
  Country: None (occurrence: None)
  Receive Date: 20050302
  Receipt Date: 20050217
  Transmission Date: 20050727
  Serious: Yes (Disabling, Other)
  Sender: FDA-Public Use
  Company Number: DEU-2005-0001276

PATIENT
  Age: 68 Year
  Sex: Female
  Weight: 52 kg

DRUGS (7)
  1. MORPHINE SULFATE [Suspect]
     Indication: BACK PAIN
     Dosage: 20 MG, DAILY, ORAL
     Route: 048
     Dates: start: 20020101
  2. COSAAR (LOSARTAN POTASSIUM) [Concomitant]
  3. NOVALGIN [Concomitant]
  4. ZURCAL (PANTOPRAZOLE SODIUM) [Concomitant]
  5. OXAZEPAM [Concomitant]
  6. ASPIRIN [Concomitant]
  7. PARAGAR (PHENOLHTHALEIN, PARAFFIN, LIQUID, AGAR) [Concomitant]

REACTIONS (8)
  - ALLODYNIA [None]
  - BURNING SENSATION [None]
  - DYSAESTHESIA [None]
  - HYPERAESTHESIA [None]
  - PAIN OF SKIN [None]
  - PARANEOPLASTIC SYNDROME [None]
  - RASH PRURITIC [None]
  - THERAPY NON-RESPONDER [None]
